FAERS Safety Report 6430152-3 (Version None)
Quarter: 2009Q4

REPORT INFORMATION
  Report Type: 
  Country: None (occurrence: None)
  Receive Date: 20091106
  Receipt Date: 20091028
  Transmission Date: 20100525
  Serious: Yes (Other)
  Sender: FDA-Public Use
  Company Number: US-JNJFOC-20091008733

PATIENT
  Sex: Male
  Weight: 81.65 kg

DRUGS (5)
  1. REMICADE [Suspect]
     Route: 042
  2. REMICADE [Suspect]
     Indication: CROHN'S DISEASE
     Route: 042
  3. LEXAPRO [Concomitant]
     Route: 048
  4. PROTONIX [Concomitant]
     Route: 048
  5. VICOPROFEN [Concomitant]
     Indication: PAIN
     Route: 048

REACTIONS (2)
  - MULTIPLE SCLEROSIS [None]
  - SMALL INTESTINAL RESECTION [None]
